FAERS Safety Report 7242258-X (Version None)
Quarter: 2011Q1

REPORT INFORMATION
  Report Type: 
  Country: None (occurrence: None)
  Receive Date: 20110125
  Receipt Date: 20110120
  Transmission Date: 20110831
  Serious: No
  Sender: FDA-Public Use
  Company Number: US-ASTRAZENECA-2011SE03437

PATIENT
  Age: 12605 Day
  Sex: Male
  Weight: 101.2 kg

DRUGS (8)
  1. METFORMIN HCL [Concomitant]
     Dosage: 250 MG-500 MG
     Route: 048
     Dates: start: 20080403
  2. RANITIDINE HCL [Concomitant]
     Route: 048
     Dates: start: 20080403
  3. SERTRALINE HYDROCHLORIDE [Concomitant]
     Route: 048
     Dates: start: 20080227
  4. SEROQUEL [Suspect]
     Dosage: 50 MG-300MG
     Route: 048
     Dates: start: 20080205
  5. LORAZEPAM [Concomitant]
     Route: 048
     Dates: start: 20080205
  6. GEMFIBROZIL [Concomitant]
     Route: 048
     Dates: start: 20080303
  7. CLOMIPHENE CITRATE [Concomitant]
     Route: 048
     Dates: start: 20080205
  8. CLONAZEPAM [Concomitant]
     Route: 048
     Dates: start: 20080214

REACTIONS (2)
  - TYPE 2 DIABETES MELLITUS [None]
  - LEUKOCYTOSIS [None]
